FAERS Safety Report 14057378 (Version 2)
Quarter: 2017Q4

REPORT INFORMATION
  Report Type: Spontaneous
  Country: US (occurrence: US)
  Receive Date: 20171006
  Receipt Date: 20171009
  Transmission Date: 20180321
  Serious: No
  Sender: FDA-Public Use
  Company Number: US-PFIZER INC-2017430382

PATIENT
  Age: 70 Year
  Sex: Male
  Weight: 73 kg

DRUGS (1)
  1. XALKORI [Suspect]
     Active Substance: CRIZOTINIB
     Indication: LUNG CARCINOMA CELL TYPE UNSPECIFIED STAGE IV
     Dosage: 250 MG, 2X/DAY
     Route: 048
     Dates: start: 201705

REACTIONS (2)
  - Abdominal pain upper [Recovered/Resolved]
  - Dysphagia [Recovered/Resolved]

NARRATIVE: CASE EVENT DATE: 201706
